FAERS Safety Report 5705087-1 (Version None)
Quarter: 2008Q2

REPORT INFORMATION
  Report Type: 
  Country: None (occurrence: None)
  Receive Date: 20080410
  Receipt Date: 20080331
  Transmission Date: 20081010
  Serious: Yes (Hospitalization, Other)
  Sender: FDA-Public Use
  Company Number: 232688J08USA

PATIENT
  Age: 42 Year
  Sex: Female
  Weight: 145.151 kg

DRUGS (6)
  1. REBIF [Suspect]
     Indication: MULTIPLE SCLEROSIS
     Dosage: 44 MCG, 3 IN 1 WEEKS, SUBCUTANEOUS, 44 MCG, 3 IN 1 WEEKS, SUBCUTANEOUS
     Route: 058
     Dates: start: 20051015, end: 20080317
  2. REBIF [Suspect]
     Indication: MULTIPLE SCLEROSIS
     Dosage: 44 MCG, 3 IN 1 WEEKS, SUBCUTANEOUS, 44 MCG, 3 IN 1 WEEKS, SUBCUTANEOUS
     Route: 058
     Dates: start: 20080301
  3. BACLOFEN [Concomitant]
  4. NEURONTIN [Concomitant]
  5. DIOVAN [Concomitant]
  6. NORVASC [Concomitant]

REACTIONS (7)
  - ANAEMIA [None]
  - BLOOD POTASSIUM DECREASED [None]
  - BREAST PAIN [None]
  - CHEST PAIN [None]
  - CHOLELITHIASIS [None]
  - MUSCULOSKELETAL PAIN [None]
  - URINARY TRACT INFECTION [None]
